FAERS Safety Report 17089268 (Version 1)
Quarter: 2019Q4

REPORT INFORMATION
  Report Type: Spontaneous
  Country: DE (occurrence: DE)
  Receive Date: 20191128
  Receipt Date: 20191128
  Transmission Date: 20200122
  Serious: Yes (Other)
  Sender: FDA-Public Use
  Company Number: DE-ABBVIE-19K-062-3168748-00

PATIENT
  Age: 30 Year
  Sex: Male
  Weight: 60 kg

DRUGS (1)
  1. ADALIMUMAB [Suspect]
     Active Substance: ADALIMUMAB
     Indication: PSORIATIC ARTHROPATHY
     Route: 058
     Dates: end: 20191004

REACTIONS (7)
  - Haemolysis [Not Recovered/Not Resolved]
  - Salmonella sepsis [Not Recovered/Not Resolved]
  - Psoriatic arthropathy [Unknown]
  - Flatulence [Recovered/Resolved]
  - Sepsis [Not Recovered/Not Resolved]
  - Arthritis [Unknown]
  - Synovitis [Unknown]

NARRATIVE: CASE EVENT DATE: 201910
